FAERS Safety Report 9942075 (Version 1)
Quarter: 2014Q1

REPORT INFORMATION
  Report Type: Report from Study
  Country: US (occurrence: US)
  Receive Date: 20140303
  Receipt Date: 20140303
  Transmission Date: 20141002
  Serious: No
  Sender: FDA-Public Use
  Company Number: US-ABBVIE-13P-163-1040990-00

PATIENT
  Age: 37 Year
  Sex: Female

DRUGS (8)
  1. HUMIRA [Suspect]
     Indication: PSORIASIS
     Dates: start: 20130102, end: 20130102
  2. HUMIRA [Suspect]
     Dates: start: 20130109
  3. ARAVA [Concomitant]
     Indication: PSORIATIC ARTHROPATHY
  4. ARAVA [Concomitant]
     Indication: PSORIASIS
  5. LISINOPRIL [Concomitant]
     Indication: HYPERTENSION
  6. ALPRAZOLAM [Concomitant]
     Indication: PRODUCT USED FOR UNKNOWN INDICATION
     Dosage: 1MG UP TO TID BUT 1-2 PILLS EVERY DAY
  7. LORTAB [Concomitant]
     Indication: PAIN
  8. TRIAMCINOLONE [Concomitant]
     Indication: PRODUCT USED FOR UNKNOWN INDICATION
     Route: 061

REACTIONS (2)
  - Psoriasis [Not Recovered/Not Resolved]
  - Nasopharyngitis [Unknown]
